FAERS Safety Report 15114425 (Version 4)
Quarter: 2020Q4

REPORT INFORMATION
  Report Type: Report from Study
  Country: US (occurrence: US)
  Receive Date: 20180706
  Receipt Date: 20201106
  Transmission Date: 20210113
  Serious: Yes (Hospitalization, Other)
  Sender: FDA-Public Use
  Company Number: US-IPSEN BIOPHARMACEUTICALS, INC.-2017-13319

PATIENT
  Age: 2 Year
  Sex: Male
  Weight: 11.8 kg

DRUGS (23)
  1. DYSPORT [Suspect]
     Active Substance: ABOBOTULINUMTOXINA
     Indication: MUSCLE SPASTICITY
     Dosage: 650 IU (BILATERAL TRICEPS (100U), BILATERAL HAMSTRINGS (150U), 400U (INJECTION SITE- NOT REPORTED))
     Route: 030
     Dates: start: 20170801, end: 20170801
  2. PHENOL/ALCOHOL [Concomitant]
     Route: 030
     Dates: start: 20181211, end: 20181211
  3. BACLOFEN. [Concomitant]
     Active Substance: BACLOFEN
     Indication: MUSCLE SPASTICITY
     Route: 048
     Dates: start: 20161129
  4. LAMICTAL [Concomitant]
     Active Substance: LAMOTRIGINE
     Route: 048
     Dates: start: 20190726, end: 20190731
  5. DIASTAT [Concomitant]
     Active Substance: DIAZEPAM
     Indication: SEIZURE
     Route: 054
     Dates: start: 20170124, end: 20190102
  6. KEPPRA [Concomitant]
     Active Substance: LEVETIRACETAM
     Indication: SEIZURE
     Route: 048
     Dates: start: 20170201, end: 20190323
  7. PHENOL/ALCOHOL [Concomitant]
     Route: 030
     Dates: start: 20180102, end: 20180102
  8. PHENOL/ALCOHOL [Concomitant]
     Route: 030
     Dates: start: 20180703, end: 20180703
  9. DIAZEPAM. [Concomitant]
     Active Substance: DIAZEPAM
     Indication: MUSCLE SPASTICITY
  10. LAMICTAL [Concomitant]
     Active Substance: LAMOTRIGINE
     Indication: SEIZURE
     Route: 048
     Dates: start: 20190625, end: 20190726
  11. LAMICTAL [Concomitant]
     Active Substance: LAMOTRIGINE
     Dosage: ONGOING
     Route: 048
     Dates: start: 20191009
  12. DYSPORT [Suspect]
     Active Substance: ABOBOTULINUMTOXINA
     Indication: MUSCLE SPASTICITY
  13. PHENOL/ALCOHOL [Concomitant]
     Indication: MUSCLE SPASTICITY
     Route: 030
     Dates: start: 20170801, end: 20170801
  14. PHENOL/ALCOHOL [Concomitant]
     Route: 030
     Dates: start: 20190531, end: 20190531
  15. DYSPORT [Suspect]
     Active Substance: ABOBOTULINUMTOXINA
     Indication: OFF LABEL USE
  16. KEPPRA [Concomitant]
     Active Substance: LEVETIRACETAM
     Route: 048
     Dates: start: 20190504, end: 20190618
  17. BACLOFEN. [Concomitant]
     Active Substance: BACLOFEN
     Route: 048
     Dates: start: 20181023, end: 20190807
  18. DIAZEPAM. [Concomitant]
     Active Substance: DIAZEPAM
     Indication: SEIZURE
     Route: 054
     Dates: start: 20190102
  19. LAMICTAL [Concomitant]
     Active Substance: LAMOTRIGINE
     Route: 048
     Dates: start: 20190731, end: 20190807
  20. KEPPRA [Concomitant]
     Active Substance: LEVETIRACETAM
     Route: 048
     Dates: start: 20190618, end: 20190726
  21. LAMICTAL [Concomitant]
     Active Substance: LAMOTRIGINE
     Dosage: ONGOING
     Route: 048
     Dates: start: 20190807
  22. KEPPRA [Concomitant]
     Active Substance: LEVETIRACETAM
     Route: 048
     Dates: start: 20190726
  23. PHENOL/ALCOHOL [Concomitant]
     Route: 030
     Dates: start: 20190925, end: 20190925

REACTIONS (9)
  - Dyspnoea [Unknown]
  - Off label use [Unknown]
  - Seizure [Not Recovered/Not Resolved]
  - Poor quality sleep [Recovered/Resolved]
  - Vomiting [Recovered/Resolved]
  - Muscle twitching [Not Recovered/Not Resolved]
  - Diarrhoea [Recovered/Resolved]
  - Poor quality sleep [Recovered/Resolved]
  - Nervousness [Unknown]

NARRATIVE: CASE EVENT DATE: 20170801
